FAERS Safety Report 5968930-7 (Version None)
Quarter: 2008Q4

REPORT INFORMATION
  Report Type: 
  Country: None (occurrence: None)
  Receive Date: 20081125
  Receipt Date: 20081125
  Transmission Date: 20090506
  Serious: No
  Sender: FDA-Public Use
  Company Number: None

PATIENT
  Sex: Female
  Weight: 71.6683 kg

DRUGS (2)
  1. BUPROPION HYDROCHLORIDE [Suspect]
     Indication: ANXIETY
     Dosage: 1 PILL DAILY PO
     Route: 048
     Dates: start: 20081101, end: 20081106
  2. BUPROPION HYDROCHLORIDE [Suspect]
     Indication: DEPRESSION
     Dosage: 1 PILL DAILY PO
     Route: 048
     Dates: start: 20081101, end: 20081106

REACTIONS (6)
  - ANOREXIA [None]
  - HEADACHE [None]
  - LETHARGY [None]
  - PANIC REACTION [None]
  - PRODUCT QUALITY ISSUE [None]
  - TEARFULNESS [None]
